FAERS Safety Report 7026275-0 (Version None)
Quarter: 2010Q4

REPORT INFORMATION
  Report Type: 
  Country: None (occurrence: None)
  Receive Date: 20101004
  Receipt Date: 20100927
  Transmission Date: 20110411
  Serious: Yes (Death, Other)
  Sender: FDA-Public Use
  Company Number: TR-ELI_LILLY_AND_COMPANY-TR201009007248

PATIENT
  Age: 58 Year
  Sex: Male

DRUGS (4)
  1. HUMULIN R [Suspect]
     Dosage: 8 U, 3/D
     Route: 058
     Dates: start: 20100101
  2. LANTUS [Concomitant]
     Dosage: 12 U, EACH EVENING
     Route: 058
  3. CORASPIN [Concomitant]
     Dosage: UNK, DAILY (1/D)
     Dates: start: 20100201, end: 20100701
  4. CARDIAC THERAPY [Concomitant]
     Dosage: UNK, DAILY (1/D)
     Dates: start: 20100201, end: 20100701

REACTIONS (1)
  - RENAL FAILURE [None]
